FAERS Safety Report 9014560 (Version 2)
Quarter: 2013Q1

REPORT INFORMATION
  Report Type: Report from Study
  Country: US (occurrence: US)
  Receive Date: 20130115
  Receipt Date: 20130207
  Transmission Date: 20140127
  Serious: Yes (Death, Hospitalization)
  Sender: FDA-Public Use
  Company Number: US-009507513-1301USA003594

PATIENT
  Age: 58 Year
  Sex: Female
  Weight: 48 kg

DRUGS (15)
  1. MONTELUKAST SODIUM [Suspect]
     Indication: ASTHMA
     Dosage: UNK
     Route: 048
     Dates: start: 20030703
  2. LEVOTHYROXINE SODIUM [Interacting]
     Indication: HYPOTHYROIDISM
     Dosage: 100 MICROGRAM, AFTER 1 WEEK OF STARTING THE 50 UG
     Route: 048
  3. LEVOTHYROXINE SODIUM [Interacting]
     Dosage: 50 MICROGRAM, DAY 12 OF CYCLE 8
     Route: 048
     Dates: start: 20050531
  4. LEVOTHYROXINE SODIUM [Interacting]
     Dosage: 50 MICROGRAM, ON DAY 28 OF CYCLE 8
     Route: 048
  5. MOTRIN [Suspect]
     Dosage: UNK
     Dates: start: 20030705
  6. ZYRTEC [Suspect]
     Dosage: UNK
     Dates: start: 20030703
  7. ACETAMINOPHEN [Interacting]
     Indication: HEADACHE
     Dosage: 1000-20000 MG PER WEEK ON AVERAGE
  8. ACETAMINOPHEN [Interacting]
     Dosage: UNK
  9. ACETAMINOPHEN (+) DIPHENHYDRAMINE HYDROCHLORIDE [Suspect]
     Indication: INSOMNIA
     Dosage: UNK
     Route: 048
     Dates: start: 20040903
  10. SUNITINIB MALATE [Interacting]
     Indication: GASTROINTESTINAL STROMAL TUMOUR
     Dosage: REPEATING 6 WK CYCLES OF 4 WK ON 50 MG/DAY FOLLOWED BY 2 WKS OFF TREATMENT
     Route: 048
     Dates: start: 20040716, end: 20050702
  11. PREVACID [Concomitant]
     Dosage: UNK
     Dates: start: 20030703
  12. MEGACE [Concomitant]
     Dosage: UNK
     Dates: start: 20041216
  13. EUCERIN LOTION [Concomitant]
     Dosage: UNK
     Dates: start: 20041007
  14. ZANTAC [Concomitant]
     Dosage: UNK
     Dates: start: 20040715
  15. ALBUTEROL [Concomitant]
     Dosage: UNK
     Dates: start: 20030703

REACTIONS (3)
  - Drug interaction [Fatal]
  - Hepatic failure [Fatal]
  - Renal failure [Fatal]
